FAERS Safety Report 6182473-X (Version None)
Quarter: 2009Q2

REPORT INFORMATION
  Report Type: 
  Country: None (occurrence: None)
  Receive Date: 20090507
  Receipt Date: 20090425
  Transmission Date: 20091009
  Serious: Yes (Other)
  Sender: FDA-Public Use
  Company Number: IR-ROCHE-630373

PATIENT
  Sex: Female

DRUGS (2)
  1. COPEGUS [Suspect]
     Route: 048
  2. PEG-INTERFERON ALFA NOS [Suspect]
     Dosage: DRUG REPORTED AS ^PEGINTERFERON^.
     Route: 065

REACTIONS (1)
  - HYPOCALCAEMIA [None]
